FAERS Safety Report 22208756 (Version 1)
Quarter: 2023Q2

REPORT INFORMATION
  Report Type: Spontaneous
  Country: RU (occurrence: RU)
  Receive Date: 20230413
  Receipt Date: 20230413
  Transmission Date: 20230722
  Serious: Yes (Life-Threatening, Disabling, Other)
  Sender: FDA-Public Use
  Company Number: RU-ABBVIE-4727495

PATIENT
  Age: 42 Year
  Sex: Male

DRUGS (1)
  1. GLECAPREVIR\PIBRENTASVIR [Suspect]
     Active Substance: GLECAPREVIR\PIBRENTASVIR
     Indication: Chronic hepatitis C
     Dosage: DURATION TEXT: FOR 4 WEEKS, AS REPORTED.
     Route: 048
     Dates: start: 20221013, end: 20221108

REACTIONS (6)
  - Hepatic cirrhosis [Recovering/Resolving]
  - Drug ineffective [Unknown]
  - Drug ineffective [Recovered/Resolved]
  - Encephalopathy [Recovering/Resolving]
  - Portal shunt procedure [Unknown]
  - Hyperbilirubinaemia [Recovering/Resolving]

NARRATIVE: CASE EVENT DATE: 20221013
